FAERS Safety Report 21137377 (Version 1)
Quarter: 2022Q3

REPORT INFORMATION
  Report Type: Spontaneous
  Country: US (occurrence: None)
  Receive Date: 20220727
  Receipt Date: 20220727
  Transmission Date: 20221027
  Serious: Yes (Hospitalization)
  Sender: FDA-Public Use
  Company Number: None

PATIENT
  Age: 88 Year
  Sex: Male
  Weight: 100 kg

DRUGS (2)
  1. CLOPIDOGREL BISULFATE [Suspect]
     Active Substance: CLOPIDOGREL BISULFATE
     Indication: Vascular device user
     Dates: start: 20220304
  2. ASPIRIN [Suspect]
     Active Substance: ASPIRIN
     Indication: Vascular device user
     Dates: start: 20220304

REACTIONS (2)
  - Haematuria [None]
  - Haemorrhage urinary tract [None]

NARRATIVE: CASE EVENT DATE: 20220714
